FAERS Safety Report 8027267-5 (Version None)
Quarter: 2012Q1

REPORT INFORMATION
  Report Type: 
  Country: None (occurrence: None)
  Receive Date: 20120105
  Receipt Date: 20120105
  Transmission Date: 20120608
  Serious: No
  Sender: FDA-Public Use
  Company Number: None

PATIENT
  Age: 58 Year
  Sex: Female

DRUGS (3)
  1. PEGASYS [Suspect]
     Indication: HEPATITIS C
     Dosage: PEGASYS 180MCG QW SQ
     Route: 058
     Dates: start: 20111201, end: 20120101
  2. INCIVEK [Concomitant]
  3. RIBAVIRIN [Suspect]
     Dosage: RIBAPAK 1000MG DAILY PO
     Route: 048

REACTIONS (3)
  - URINARY TRACT INFECTION [None]
  - INSOMNIA [None]
  - DEPRESSION [None]
